FAERS Safety Report 5142999-4 (Version None)
Quarter: 2006Q4

REPORT INFORMATION
  Report Type: 
  Country: None (occurrence: None)
  Receive Date: 20061103
  Receipt Date: 20060302
  Transmission Date: 20070319
  Serious: Yes (Hospitalization, Other)
  Sender: FDA-Public Use
  Company Number: US-ELI_LILLY_AND_COMPANY-US200603002591

PATIENT
  Age: 30 Year
  Sex: Male
  Weight: 92.97 kg

DRUGS (4)
  1. QUETIAPINE [Concomitant]
     Dates: start: 20021101
  2. CITALOPRAM [Concomitant]
     Dates: start: 20021101
  3. FLUOXETINE                              /N/A/ [Concomitant]
     Dates: start: 20010901, end: 20021001
  4. ZYPREXA [Suspect]
     Dosage: 10 MG, UNK
     Dates: start: 20010901, end: 20021101

REACTIONS (4)
  - BLOOD CHOLESTEROL ABNORMAL [None]
  - DIABETES MELLITUS [None]
  - HEPATITIS VIRAL [None]
  - HYPERTENSION [None]
